FAERS Safety Report 4350472-6 (Version None)
Quarter: 2004Q2

REPORT INFORMATION
  Report Type: 
  Country: None (occurrence: None)
  Receive Date: 20040430
  Receipt Date: 20040423
  Transmission Date: 20050107
  Serious: Yes (Death, Other)
  Sender: FDA-Public Use
  Company Number: US-BRISTOL-MYERS SQUIBB COMPANY-12570099

PATIENT

DRUGS (7)
  1. CYCLOPHOSPHAMIDE [Suspect]
     Indication: BURKITT'S LYMPHOMA
     Dosage: 800 MG/M2 DAY 1 200 MG/M2 DAYS 2-5
     Dates: start: 19960101, end: 20000101
  2. ETOPOSIDE [Suspect]
     Indication: BURKITT'S LYMPHOMA
     Dosage: DAYS 1-5
     Dates: start: 19960101, end: 20000101
  3. DOXORUBICIN HCL [Suspect]
     Indication: BURKITT'S LYMPHOMA
     Dosage: DAY 1
     Dates: start: 19960101, end: 20000101
  4. METHOTREXATE [Suspect]
     Indication: BURKITT'S LYMPHOMA
     Dosage: CODOX-M: 1200 MG/M2 OVER 1 HOUR FOLLOWED BY 240 MG/M2 OVER 12 HOURS IVAC: 12 MG ON DAY 5
     Route: 037
     Dates: start: 19960101, end: 20000101
  5. IFOSFAMIDE [Suspect]
     Indication: BURKITT'S LYMPHOMA
     Dosage: DAYS 1-5
     Dates: start: 19960101, end: 20000101
  6. VINCRISTINE SULFATE [Suspect]
     Indication: BURKITT'S LYMPHOMA
     Dates: start: 19960101, end: 20000101
  7. CYTARABINE [Suspect]
     Indication: BURKITT'S LYMPHOMA
     Dosage: CODOX-M: 70 MG DAYS 1 + 3 IVAC: 2000 MG/M2 EVERY 12 HOURS ON DAYS 1 AND 2 FOR 4 DOSES
     Route: 037
     Dates: start: 19960101, end: 20000101

REACTIONS (8)
  - DEATH [None]
  - ILEUS [None]
  - INFECTION [None]
  - MUCOSAL INFLAMMATION [None]
  - NEPHROPATHY TOXIC [None]
  - NEUROPATHY [None]
  - PANCYTOPENIA [None]
  - TUMOUR LYSIS SYNDROME [None]
